FAERS Safety Report 23177815 (Version 1)
Quarter: 2023Q4

REPORT INFORMATION
  Report Type: Spontaneous
  Country: US (occurrence: US)
  Receive Date: 20231113
  Receipt Date: 20231113
  Transmission Date: 20240109
  Serious: No
  Sender: FDA-Public Use
  Company Number: US-PERRIGO-23US011403

PATIENT
  Sex: Male

DRUGS (1)
  1. POLYETHYLENE GLYCOL 3350 [Suspect]
     Active Substance: POLYETHYLENE GLYCOL 3350
     Indication: Diverticulitis
     Dosage: 17 G, QD
     Route: 048
     Dates: start: 20230922, end: 20230923

REACTIONS (5)
  - Abdominal discomfort [Not Recovered/Not Resolved]
  - Blood pressure decreased [Unknown]
  - Drug interaction [Unknown]
  - Diarrhoea [Unknown]
  - Off label use [Unknown]

NARRATIVE: CASE EVENT DATE: 20230922
